FAERS Safety Report 13416871 (Version 1)
Quarter: 2017Q2

REPORT INFORMATION
  Report Type: Spontaneous
  Country: US (occurrence: US)
  Receive Date: 20170407
  Receipt Date: 20170407
  Transmission Date: 20170830
  Serious: No
  Sender: FDA-Public Use
  Company Number: US-BAYER-2017-067121

PATIENT
  Sex: Male

DRUGS (1)
  1. CLARITIN [Suspect]
     Active Substance: LORATADINE

REACTIONS (5)
  - Product use issue [Unknown]
  - Eye irritation [Unknown]
  - Patient dissatisfaction with treatment [Unknown]
  - Drug effect delayed [Unknown]
  - Throat irritation [Unknown]
